FAERS Safety Report 17840096 (Version 1)
Quarter: 2020Q2

REPORT INFORMATION
  Report Type: Spontaneous
  Country: US (occurrence: US)
  Receive Date: 20200529
  Receipt Date: 20200529
  Transmission Date: 20200714
  Serious: No
  Sender: FDA-Public Use
  Company Number: US-ACCORD-176225

PATIENT
  Sex: Female

DRUGS (2)
  1. AMITRIPTYLINE [Suspect]
     Active Substance: AMITRIPTYLINE
     Indication: SOMNOLENCE
     Dosage: AT BEDTIME
     Dates: start: 201908
  2. CLONAZEPAM. [Suspect]
     Active Substance: CLONAZEPAM
     Indication: SOMNOLENCE
     Dosage: DAILY AT 3 PM AND 3 AM
     Dates: start: 201908

REACTIONS (2)
  - Off label use [Unknown]
  - Fatigue [Unknown]
